FAERS Safety Report 7357648-4 (Version None)
Quarter: 2011Q1

REPORT INFORMATION
  Report Type: 
  Country: None (occurrence: None)
  Receive Date: 20110317
  Receipt Date: 20110310
  Transmission Date: 20110831
  Serious: Yes (Hospitalization, Other)
  Sender: FDA-Public Use
  Company Number: FR-ELI_LILLY_AND_COMPANY-FR201103003194

PATIENT
  Age: 72 Year
  Sex: Female

DRUGS (1)
  1. GEMZAR [Suspect]
     Indication: PANCREATIC NEOPLASM
     Dosage: UNK, UNK
     Route: 042
     Dates: start: 20100928, end: 20101117

REACTIONS (7)
  - LUNG DISORDER [None]
  - PYREXIA [None]
  - ASTHENIA [None]
  - DERMATITIS BULLOUS [None]
  - DYSPNOEA [None]
  - RALES [None]
  - COUGH [None]
